APPROVED DRUG PRODUCT: OLOPATADINE HYDROCHLORIDE
Active Ingredient: OLOPATADINE HYDROCHLORIDE
Strength: EQ 0.2% BASE
Dosage Form/Route: SOLUTION/DROPS;OPHTHALMIC
Application: A206087 | Product #001
Applicant: BAUSCH AND LOMB INC
Approved: Dec 5, 2017 | RLD: No | RS: No | Type: OTC